FAERS Safety Report 25842029 (Version 1)
Quarter: 2025Q3

REPORT INFORMATION
  Report Type: Spontaneous
  Country: US (occurrence: US)
  Receive Date: 20250924
  Receipt Date: 20250924
  Transmission Date: 20251021
  Serious: Yes (Death, Other)
  Sender: NOVO NORDISK
  Company Number: US-NOVOPROD-1524744

PATIENT
  Sex: Male

DRUGS (1)
  1. NOVOLOG [Suspect]
     Active Substance: INSULIN ASPART
     Indication: Product used for unknown indication

REACTIONS (4)
  - Renal cancer [Fatal]
  - Bone cancer [Fatal]
  - Lung neoplasm malignant [Fatal]
  - Pneumonia [Fatal]
